FAERS Safety Report 4697280-4 (Version None)
Quarter: 2005Q2

REPORT INFORMATION
  Report Type: 
  Country: None (occurrence: None)
  Receive Date: 20050622
  Receipt Date: 20050415
  Transmission Date: 20051028
  Serious: Yes (Hospitalization)
  Sender: FDA-Public Use
  Company Number: US-JNJFOC-20040505053

PATIENT
  Sex: Female

DRUGS (31)
  1. INFLIXIMAB [Suspect]
     Route: 042
  2. INFLIXIMAB [Suspect]
     Indication: RHEUMATOID ARTHRITIS
     Route: 042
  3. ACTONEL [Concomitant]
  4. ULTRACET [Concomitant]
     Dosage: 37.5-325 MG TABLET AS NEEDED
  5. BEXTRA [Concomitant]
  6. NEURONTIN [Concomitant]
  7. METHOTREXATE [Concomitant]
  8. FOLIC ACID [Concomitant]
  9. CALCIUM CARBONATE/VITAMIN D [Concomitant]
     Dosage: 500-200 MG-IU TABLETS, 2 DAILY
  10. PLAQUENIL [Concomitant]
  11. ATENOLOL [Concomitant]
  12. ASPIRIN [Concomitant]
  13. VITAMIN E [Concomitant]
  14. MULTI-VITAMIN [Concomitant]
  15. MULTI-VITAMIN [Concomitant]
  16. MULTI-VITAMIN [Concomitant]
  17. MULTI-VITAMIN [Concomitant]
  18. MULTI-VITAMIN [Concomitant]
  19. MULTI-VITAMIN [Concomitant]
  20. MULTI-VITAMIN [Concomitant]
  21. MULTI-VITAMIN [Concomitant]
  22. DIFLUCAN [Concomitant]
  23. TYLENOL [Concomitant]
  24. MILK OF MAGNESIA [Concomitant]
  25. DESYREL [Concomitant]
  26. FORTEO [Concomitant]
     Dosage: 750 MCG/3 ML SOLN
  27. PROTONIX [Concomitant]
     Dosage: EC
  28. ALDOMET [Concomitant]
  29. COMBIVENT [Concomitant]
  30. COMBIVENT [Concomitant]
     Dosage: 103-18 MCG ACT AEROSOL
  31. PHENERGAN [Concomitant]

REACTIONS (4)
  - OESOPHAGEAL CANDIDIASIS [None]
  - OSTEOPOROSIS [None]
  - PANCREATITIS [None]
  - SPINAL COMPRESSION FRACTURE [None]
